FAERS Safety Report 5964812-5 (Version None)
Quarter: 2008Q4

REPORT INFORMATION
  Report Type: 
  Country: None (occurrence: None)
  Receive Date: 20081125
  Receipt Date: 20081008
  Transmission Date: 20090506
  Serious: No
  Sender: FDA-Public Use
  Company Number: US-AMGEN-KDL312237

PATIENT
  Sex: Female

DRUGS (2)
  1. ENBREL [Suspect]
     Indication: PSORIASIS
     Route: 058
     Dates: start: 20081001
  2. METHOTREXATE [Concomitant]
     Route: 048
     Dates: start: 20081001

REACTIONS (3)
  - INCREASED APPETITE [None]
  - PYREXIA [None]
  - THIRST [None]
